FAERS Safety Report 20547238 (Version 6)
Quarter: 2022Q3

REPORT INFORMATION
  Report Type: Report from Study
  Country: US (occurrence: US)
  Receive Date: 20220303
  Receipt Date: 20220907
  Transmission Date: 20221026
  Serious: No
  Sender: FDA-Public Use
  Company Number: US-NOVARTISTESTPH-NVSC2022US050769

PATIENT
  Sex: Female

DRUGS (2)
  1. COSENTYX [Suspect]
     Active Substance: SECUKINUMAB
     Indication: Psoriasis
     Dosage: 300 MG, QMO
     Route: 058
  2. COSENTYX [Suspect]
     Active Substance: SECUKINUMAB
     Dosage: 300 MG, Q3W
     Route: 058

REACTIONS (9)
  - Lip dry [Unknown]
  - Paraesthesia [Unknown]
  - Pruritus [Recovering/Resolving]
  - Nasal dryness [Unknown]
  - Fungal infection [Unknown]
  - Lip injury [Unknown]
  - Skin fissures [Unknown]
  - Oral candidiasis [Unknown]
  - Off label use [Unknown]
